FAERS Safety Report 16212369 (Version 2)
Quarter: 2019Q3

REPORT INFORMATION
  Report Type: Spontaneous
  Country: US (occurrence: US)
  Receive Date: 20190418
  Receipt Date: 20190911
  Transmission Date: 20191004
  Serious: No
  Sender: FDA-Public Use
  Company Number: US-PFIZER INC-2019165160

PATIENT
  Age: 79 Year
  Sex: Female
  Weight: 77.98 kg

DRUGS (3)
  1. LYRICA [Suspect]
     Active Substance: PREGABALIN
     Indication: PARAESTHESIA
  2. LYRICA [Suspect]
     Active Substance: PREGABALIN
     Indication: PRURITUS
     Dosage: 75 MG, 1X/DAY
  3. LYRICA [Suspect]
     Active Substance: PREGABALIN
     Indication: RESTLESS LEGS SYNDROME

REACTIONS (1)
  - Fall [Unknown]
